FAERS Safety Report 5122134-9 (Version None)
Quarter: 2006Q4

REPORT INFORMATION
  Report Type: 
  Country: None (occurrence: None)
  Receive Date: 20061006
  Receipt Date: 20060929
  Transmission Date: 20070319
  Serious: Yes (Other)
  Sender: FDA-Public Use
  Company Number: IN-BOEHRINGER INGELHEIM PHARMACEUTICALS, INC.-2006-DE-05201GD

PATIENT
  Age: 6 Year
  Sex: Male

DRUGS (5)
  1. NEVIRAPINE [Suspect]
     Indication: HIV INFECTION
  2. ZIDOVUDINE [Suspect]
     Indication: HIV INFECTION
  3. LAMIVUDINE [Suspect]
     Indication: HIV INFECTION
  4. STAVUDINE [Suspect]
     Indication: HIV INFECTION
  5. EFAVIRENZ [Suspect]
     Indication: HIV INFECTION

REACTIONS (6)
  - DRUG INEFFECTIVE [None]
  - IMMUNE SYSTEM DISORDER [None]
  - LACTIC ACIDOSIS [None]
  - MENINGITIS [None]
  - METABOLIC ACIDOSIS [None]
  - THERAPEUTIC PRODUCT INEFFECTIVE [None]
